FAERS Safety Report 8873032 (Version 1)
Quarter: 2012Q4

REPORT INFORMATION
  Report Type: 
  Country: CN (occurrence: CN)
  Receive Date: 20121029
  Receipt Date: 20121029
  Transmission Date: 20130627
  Serious: Yes (Hospitalization)
  Sender: FDA-Public Use
  Company Number: CN-MYLANLABS-2012S1021630

PATIENT
  Age: 49 Year
  Sex: Female

DRUGS (2)
  1. DOXORUBICIN [Suspect]
     Indication: BREAST CANCER
     Dosage: 150mg; received 3 cycles of chemotherapy in total
     Route: 042
     Dates: start: 20100601
  2. PACLITAXEL [Suspect]
     Indication: BREAST CANCER
     Dosage: 60mg; received 3 cycles of chemotherapy in total
     Route: 065
     Dates: start: 20100601

REACTIONS (1)
  - Palmar-plantar erythrodysaesthesia syndrome [Recovered/Resolved]
